FAERS Safety Report 25003002 (Version 1)
Quarter: 2025Q1

REPORT INFORMATION
  Report Type: Spontaneous
  Country: IT (occurrence: IT)
  Receive Date: 20250224
  Receipt Date: 20250224
  Transmission Date: 20250409
  Serious: Yes (Life-Threatening, Hospitalization, Other)
  Sender: CHEPLAPHARM
  Company Number: None

PATIENT
  Age: 27 Year
  Sex: Female

DRUGS (7)
  1. CLONAZEPAM [Suspect]
     Active Substance: CLONAZEPAM
     Route: 048
     Dates: start: 20230925, end: 20230925
  2. GABAPENTIN [Suspect]
     Active Substance: GABAPENTIN
     Dosage: 20 CAPSULE OF 300 MG?DAILY DOSE: 6 GRAM
     Route: 048
     Dates: start: 20230925, end: 20230925
  3. VENLAFAXINE HYDROCHLORIDE [Suspect]
     Active Substance: VENLAFAXINE HYDROCHLORIDE
     Dosage: DAILY DOSE: 75 MILLIGRAM
     Route: 048
     Dates: start: 20230925, end: 20230925
  4. HALCION [Suspect]
     Active Substance: TRIAZOLAM
     Dosage: DAILY DOSE: 250 MICROGRAM
     Route: 048
     Dates: start: 20230925, end: 20230925
  5. ZOLOFT [Suspect]
     Active Substance: SERTRALINE HYDROCHLORIDE
     Dosage: 7 TABLETS OF 100 MG?DAILY DOSE: 700 MILLIGRAM
     Route: 048
     Dates: start: 20230925, end: 20230925
  6. TALOFEN [Suspect]
     Active Substance: PROMAZINE HYDROCHLORIDE
     Dates: start: 20230925, end: 20230925
  7. BISOPROLOL FUMARATE [Suspect]
     Active Substance: BISOPROLOL FUMARATE
     Dosage: 27 TABLETS OF 1.25 MG?DAILY DOSE: 33.75 MILLIGRAM
     Route: 048
     Dates: start: 20230925, end: 20230925

REACTIONS (3)
  - Intentional overdose [Recovered/Resolved]
  - Suicide attempt [Recovered/Resolved]
  - Abdominal pain upper [Recovered/Resolved]

NARRATIVE: CASE EVENT DATE: 20230925
